FAERS Safety Report 4525455-3 (Version None)
Quarter: 2005Q1

REPORT INFORMATION
  Report Type: 
  Country: None (occurrence: None)
  Receive Date: 20041108
  Receipt Date: 20040323
  Transmission Date: 20050727
  Serious: Yes (Other)
  Sender: FDA-Public Use
  Company Number: US-JNJFOC-20040600904

PATIENT
  Age: 25 Year
  Sex: Female

DRUGS (1)
  1. EXTRA STRENGTH TYLENOL [Suspect]
     Indication: SUICIDE ATTEMPT
     Dosage: UP TO 30,000 MG ONCE
     Dates: start: 20040323, end: 20040323

REACTIONS (1)
  - INTENTIONAL MISUSE [None]
